FAERS Safety Report 8929912 (Version 2)
Quarter: 2012Q4

REPORT INFORMATION
  Report Type: 
  Country: GB (occurrence: GB)
  Receive Date: 20121128
  Receipt Date: 20121218
  Transmission Date: 20130627
  Serious: Yes (Hospitalization)
  Sender: FDA-Public Use
  Company Number: GB-BAUSCH-BL-2012-001861

PATIENT
  Age: 74 Year
  Sex: Male

DRUGS (1)
  1. LATANOPROST [Suspect]
     Indication: PRODUCT USED FOR UNKNOWN INDICATION
     Dosage: 1 drop daily
     Route: 047
     Dates: start: 20121102

REACTIONS (1)
  - Intraocular pressure increased [Not Recovered/Not Resolved]
